FAERS Safety Report 12650187 (Version 2)
Quarter: 2017Q1

REPORT INFORMATION
  Report Type: Spontaneous
  Country: US (occurrence: US)
  Receive Date: 20160813
  Receipt Date: 20170104
  Transmission Date: 20170428
  Serious: No
  Sender: FDA-Public Use
  Company Number: US-CELGENEUS-USA-2016082343

PATIENT
  Sex: Male
  Weight: 118.04 kg

DRUGS (1)
  1. OTEZLA [Suspect]
     Active Substance: APREMILAST
     Indication: PSORIASIS
     Dosage: 60 MG
     Route: 048
     Dates: start: 20150309

REACTIONS (5)
  - Productive cough [Recovered/Resolved]
  - Skin discolouration [Recovered/Resolved]
  - Drug ineffective [Recovered/Resolved]
  - Dry mouth [Recovered/Resolved]
  - Chest pain [Recovered/Resolved]

NARRATIVE: CASE EVENT DATE: 2016
